FAERS Safety Report 5757083-6 (Version None)
Quarter: 2008Q2

REPORT INFORMATION
  Report Type: 
  Country: None (occurrence: None)
  Receive Date: 20080603
  Receipt Date: 20080529
  Transmission Date: 20081010
  Serious: Yes (Death, Hospitalization)
  Sender: FDA-Public Use
  Company Number: B0522729A

PATIENT
  Age: 63 Year
  Sex: Female

DRUGS (1)
  1. FLUTIDE [Suspect]
     Indication: DRUG USE FOR UNKNOWN INDICATION
     Route: 055

REACTIONS (3)
  - DEATH [None]
  - ORAL CANDIDIASIS [None]
  - PNEUMONIA [None]
